FAERS Safety Report 5267900-4 (Version None)
Quarter: 2007Q1

REPORT INFORMATION
  Report Type: 
  Country: None (occurrence: None)
  Receive Date: 20061213
  Receipt Date: 20040419
  Transmission Date: 20070707
  Serious: No
  Sender: FDA-Public Use
  Company Number: 2004UW07908

PATIENT

DRUGS (2)
  1. IRESSA [Suspect]
     Indication: NON-SMALL CELL LUNG CANCER RECURRENT
     Dosage: 250 MG PO
     Route: 048
  2. RADIATION [Concomitant]

REACTIONS (2)
  - PNEUMONITIS [None]
  - RECALL PHENOMENON [None]
